FAERS Safety Report 9392022 (Version 1)
Quarter: 2013Q3

REPORT INFORMATION
  Report Type: Spontaneous
  Country: GB (occurrence: GB)
  Receive Date: 20130709
  Receipt Date: 20130709
  Transmission Date: 20140515
  Serious: Yes (Disabling, Other)
  Sender: FDA-Public Use
  Company Number: GB-ASTRAZENECA-2013SE49841

PATIENT
  Age: 33 Year
  Sex: Male
  Weight: 102.5 kg

DRUGS (6)
  1. ZOMIG [Suspect]
     Indication: MIGRAINE
     Dosage: 2.5 MG/M2
     Route: 048
     Dates: start: 20130611, end: 20130611
  2. FLUOXETINE [Interacting]
     Indication: DEPRESSED MOOD
     Route: 048
     Dates: start: 20130316, end: 20130612
  3. ALOE VERA [Concomitant]
  4. MIGRALEVE PINK [Concomitant]
     Indication: MIGRAINE
  5. MIGRALEVE YELLOW [Concomitant]
     Indication: MIGRAINE
  6. SERETIDE [Concomitant]

REACTIONS (9)
  - Drug interaction [Unknown]
  - Serotonin syndrome [Recovered/Resolved with Sequelae]
  - Chills [Unknown]
  - Dyspnoea [Unknown]
  - Feeling abnormal [Not Recovered/Not Resolved]
  - Tremor [Unknown]
  - Abasia [Unknown]
  - Chest discomfort [Unknown]
  - Palpitations [Unknown]
